FAERS Safety Report 8799295 (Version 2)
Quarter: 2012Q4

REPORT INFORMATION
  Report Type: 
  Country: US (occurrence: US)
  Receive Date: 20120919
  Receipt Date: 20121005
  Transmission Date: 20130627
  Serious: No
  Sender: FDA-Public Use
  Company Number: US-PFIZER INC-2012227249

PATIENT
  Age: 71 Year
  Sex: Male

DRUGS (14)
  1. TIKOSYN [Suspect]
     Dosage: 500 ug, 2x/day (every 12 hours)
     Route: 048
  2. ALDACTONE [Suspect]
     Dosage: 25 mg, every day
     Route: 048
  3. PROCARDIA XL [Suspect]
     Indication: HYPERTENSION
     Dosage: 30 mg, at bed time
     Route: 048
  4. FISH OIL [Concomitant]
     Dosage: 1200 mg, every day
     Route: 048
  5. INSULIN DETEMIR [Concomitant]
     Dosage: 45 units every day
     Route: 058
  6. COUMADINE [Concomitant]
     Dosage: 5 mg, every day
     Route: 048
  7. CARVEDILOL [Concomitant]
     Dosage: 25 mg, 2x/day (every 12 hours)
     Route: 048
  8. LASIX [Concomitant]
     Dosage: 40 mg, every day
     Route: 048
  9. NOVOLOG [Concomitant]
     Dosage: 2 times per day, 25 units in AM, 25 units in PM
     Route: 058
  10. LOSARTAN [Concomitant]
     Dosage: 50 mg, every day
     Route: 048
  11. ACETAMINOPHEN W/CODEINE [Concomitant]
     Dosage: 1 tablet every 4 hours PRN
     Route: 048
  12. SIMVASTATIN [Concomitant]
     Dosage: 20 mg, every day
     Route: 048
  13. TESTIM [Concomitant]
     Dosage: 1 %, 50 mg/5 gm 1 application every day
     Route: 062
  14. VICODIN [Concomitant]
     Dosage: PRN
     Route: 048

REACTIONS (1)
  - Soft tissue injury [Unknown]
